FAERS Safety Report 10053708 (Version 6)
Quarter: 2014Q3

REPORT INFORMATION
  Report Type: Spontaneous
  Country: JP (occurrence: JP)
  Receive Date: 20140402
  Receipt Date: 20140818
  Transmission Date: 20150326
  Serious: Yes (Hospitalization, Other)
  Sender: FDA-Public Use
  Company Number: US-ASTRAZENECA-2014SE21535

PATIENT
  Age: 346 Day
  Sex: Female
  Weight: 5.4 kg

DRUGS (3)
  1. SYNAGIS [Suspect]
     Active Substance: PALIVIZUMAB
     Indication: PREMATURE BABY
     Route: 030
     Dates: start: 20140118, end: 20140118
  2. SYNAGIS [Suspect]
     Active Substance: PALIVIZUMAB
     Indication: PREMATURE BABY
     Route: 030
     Dates: start: 20140222, end: 20140222
  3. CLAFORAN [Suspect]
     Active Substance: CEFOTAXIME SODIUM
     Indication: PNEUMONIA
     Route: 041
     Dates: start: 20140304, end: 20140306

REACTIONS (13)
  - Dyspnoea [Recovering/Resolving]
  - Pyrexia [Recovering/Resolving]
  - Thrombocytopenic purpura [Unknown]
  - Sputum increased [Unknown]
  - Pneumonia [Unknown]
  - Tracheomalacia [Unknown]
  - Post procedural haemorrhage [Recovered/Resolved]
  - Condition aggravated [Unknown]
  - Haemorrhagic diathesis [Unknown]
  - Bronchitis [Recovered/Resolved]
  - Haematochezia [Unknown]
  - Thrombocytopenia [Recovered/Resolved]
  - Bronchopulmonary dysplasia [Unknown]

NARRATIVE: CASE EVENT DATE: 20140120
